FAERS Safety Report 23735039 (Version 1)
Quarter: 2024Q2

REPORT INFORMATION
  Report Type: Spontaneous
  Country: NL (occurrence: None)
  Receive Date: 20240412
  Receipt Date: 20240412
  Transmission Date: 20240716
  Serious: Yes (Death, Life-Threatening, Hospitalization, Other)
  Sender: FDA-Public Use
  Company Number: 2024A083449

PATIENT
  Age: 79 Year
  Sex: Female
  Weight: 62 kg

DRUGS (8)
  1. TAGRISSO [Suspect]
     Active Substance: OSIMERTINIB
     Indication: Lung cancer metastatic
     Dosage: 1 PIECE ONCE A DAY
     Route: 048
     Dates: start: 20230214
  2. OMEPRAZOLE [Concomitant]
     Active Substance: OMEPRAZOLE
     Dosage: GASTRO-RESISTANT CAPSULE, 20 MG (MILLIGRAMS)
  3. PERINDOPRIL ERBUMINE [Concomitant]
     Active Substance: PERINDOPRIL ERBUMINE
     Dosage: TABLET, 4 MG (MILLIGRAM)
  4. XARELTO [Concomitant]
     Active Substance: RIVAROXABAN
  5. ACETAMINOPHEN [Concomitant]
     Active Substance: ACETAMINOPHEN
     Dosage: CAPSULE, 500 MG (MILLIGRAM)
  6. ASPIRIN [Concomitant]
     Active Substance: ASPIRIN
     Dosage: TABLET, 80 MG (MILLIGRAM)
  7. GLICLAZIDE [Concomitant]
     Active Substance: GLICLAZIDE
     Dosage: MODIFIED-RELEASE TABLET, 30 MG (MILLIGRAM)
  8. METOPROLOL SUCCINATE [Concomitant]
     Active Substance: METOPROLOL SUCCINATE
     Dosage: MODIFIED-RELEASE TABLET, 100 MG (MILLIGRAM)

REACTIONS (5)
  - Dyspnoea [Fatal]
  - Malaise [Fatal]
  - Pyrexia [Fatal]
  - Pulmonary oedema [Fatal]
  - C-reactive protein increased [Fatal]
